FAERS Safety Report 4562268-0 (Version None)
Quarter: 2005Q1

REPORT INFORMATION
  Report Type: 
  Country: None (occurrence: None)
  Receive Date: 20050121
  Receipt Date: 20050110
  Transmission Date: 20050727
  Serious: Yes (Hospitalization)
  Sender: FDA-Public Use
  Company Number: 2004102104

PATIENT
  Sex: Female
  Weight: 68.0396 kg

DRUGS (4)
  1. XANAX [Suspect]
     Indication: ANXIETY
     Dosage: 4 MG (2 MG, 1 IN 2 D), ORAL
     Route: 048
     Dates: start: 19980101
  2. ZOLPIDEM TARTRATE [Concomitant]
  3. CARISOPRODOL [Concomitant]
  4. IBUPROFEN [Concomitant]

REACTIONS (2)
  - BREAST CANCER FEMALE [None]
  - NEOPLASM RECURRENCE [None]
